FAERS Safety Report 7931441-3 (Version None)
Quarter: 2011Q4

REPORT INFORMATION
  Report Type: 
  Country: None (occurrence: None)
  Receive Date: 20111121
  Receipt Date: 20111111
  Transmission Date: 20120403
  Serious: Yes (Congenital Anomaly)
  Sender: FDA-Public Use
  Company Number: DE-TEVA-304389GER

PATIENT

DRUGS (6)
  1. RAMIPRIL [Suspect]
     Dosage: 5 MILLIGRAM;
     Route: 064
     Dates: start: 20101031, end: 20110126
  2. ENOXAPARIN SODIUM [Concomitant]
     Dosage: 140 MILLIGRAM;
     Route: 064
     Dates: start: 20110114, end: 20110131
  3. CYCLOSPORINE [Suspect]
     Dosage: 300 MILLIGRAM;
     Route: 064
     Dates: start: 20091031, end: 20110131
  4. TORSEMIDE [Suspect]
     Route: 064
     Dates: start: 20101031, end: 20110126
  5. FALITHROM [Suspect]
     Dosage: 6 [MG/D (2X3) ]
     Route: 064
     Dates: start: 20091031, end: 20110113
  6. PREDNISOLONE [Concomitant]
     Dosage: 7.5 MILLIGRAM;
     Route: 064
     Dates: start: 20091031, end: 20110131

REACTIONS (1)
  - FALLOT'S TETRALOGY [None]
